FAERS Safety Report 14663051 (Version 2)
Quarter: 2018Q1

REPORT INFORMATION
  Report Type: Report from Study
  Country: FR (occurrence: FR)
  Receive Date: 20180321
  Receipt Date: 20180330
  Transmission Date: 20180509
  Serious: Yes (Hospitalization)
  Sender: FDA-Public Use
  Company Number: FR-ROCHE-1604737

PATIENT
  Age: 55 Year
  Sex: Male
  Weight: 72 kg

DRUGS (10)
  1. OMEPRAZOL [Concomitant]
     Active Substance: OMEPRAZOLE
     Indication: GASTRIC DISORDER
     Route: 048
     Dates: start: 201709, end: 201709
  2. PARACETAMOL [Concomitant]
     Active Substance: ACETAMINOPHEN
     Route: 048
     Dates: start: 201701, end: 201702
  3. FLUIDABAK [Concomitant]
     Active Substance: POVIDONE
     Indication: DRY EYE
     Dosage: DOSE: 1.5 (UNIT: OTHER)
     Route: 047
     Dates: start: 20150623, end: 20170607
  4. PARACETAMOL [Concomitant]
     Active Substance: ACETAMINOPHEN
     Indication: HEADACHE
     Dosage: FREQUENCY: UNKNOWN
     Route: 048
     Dates: start: 20150119, end: 201501
  5. GAVISCON (ALGINIC ACID) [Concomitant]
     Active Substance: ALGINIC ACID
     Indication: DYSPEPSIA
     Dosage: DOSE: 1 OTHER
     Route: 048
     Dates: start: 20150206, end: 201507
  6. OFLOXACINE [Concomitant]
     Active Substance: OFLOXACIN
     Route: 048
     Dates: start: 201610, end: 201610
  7. TAZOCILLINE [Concomitant]
     Active Substance: PIPERACILLIN SODIUM\TAZOBACTAM SODIUM
     Indication: PYELONEPHRITIS
     Dosage: FREQUENCY: UNKNOWN
     Route: 042
     Dates: start: 201509, end: 20150924
  8. ATEZOLIZUMAB. [Suspect]
     Active Substance: ATEZOLIZUMAB
     Indication: BLADDER TRANSITIONAL CELL CARCINOMA
     Dosage: DATE OF MOST RECENT DOSE OF MPDL3280A PRIOR TO AE ONSET: 02/JUL/2015
     Route: 042
     Dates: start: 20141024
  9. PROFENID [Concomitant]
     Active Substance: KETOPROFEN
     Indication: BACK PAIN
     Route: 048
     Dates: start: 201709, end: 201709
  10. PARACETAMOL [Concomitant]
     Active Substance: ACETAMINOPHEN
     Indication: BACK PAIN
     Route: 048
     Dates: start: 20150514, end: 20160303

REACTIONS (1)
  - Pulmonary embolism [Recovered/Resolved]

NARRATIVE: CASE EVENT DATE: 20150706
